FAERS Safety Report 4726971-1 (Version None)
Quarter: 2005Q3

REPORT INFORMATION
  Report Type: 
  Country: None (occurrence: None)
  Receive Date: 20050728
  Receipt Date: 20050720
  Transmission Date: 20060218
  Serious: Yes (Hospitalization)
  Sender: FDA-Public Use
  Company Number: US-BRISTOL-MYERS SQUIBB COMPANY-13045398

PATIENT
  Age: 46 Year
  Sex: Female
  Weight: 80 kg

DRUGS (6)
  1. CETUXIMAB [Suspect]
     Indication: PANCREATIC CARCINOMA
     Dosage: TOTAL DOSE PLANNED: 784 MG.  INFUSTION STOPPED; ESTIMATED AMOUNT RECEIVED: 130 MG.
     Route: 042
     Dates: start: 20050718, end: 20050718
  2. BENADRYL [Concomitant]
     Route: 048
  3. MS CONTIN [Concomitant]
     Route: 048
  4. NORCO [Concomitant]
     Dosage: 5/325 MG, 1-2, ORAL EVERY 4-6 HOURS.
     Route: 048
  5. RISTORIL [Concomitant]
     Indication: INSOMNIA
  6. ZANTAC [Concomitant]
     Route: 042

REACTIONS (1)
  - CYTOKINE RELEASE SYNDROME [None]
